FAERS Safety Report 6358604-5 (Version None)
Quarter: 2009Q4

REPORT INFORMATION
  Report Type: 
  Country: None (occurrence: None)
  Receive Date: 20090914
  Receipt Date: 20090909
  Transmission Date: 20100525
  Serious: Yes (Hospitalization)
  Sender: FDA-Public Use
  Company Number: 20097325

PATIENT
  Sex: Male

DRUGS (1)
  1. LIORESAL [Suspect]
     Indication: MUSCLE SPASTICITY
     Dosage: MCG, DAILY, INTRATHECAL
     Route: 037

REACTIONS (6)
  - ADMINISTRATION SITE INFECTION [None]
  - IMPLANT SITE EFFUSION [None]
  - INCISION SITE ERYTHEMA [None]
  - INCISION SITE OEDEMA [None]
  - INCISION SITE PAIN [None]
  - PYREXIA [None]
